FAERS Safety Report 9849718 (Version 1)
Quarter: 2014Q1

REPORT INFORMATION
  Report Type: Spontaneous
  Country: US (occurrence: None)
  Receive Date: 20140124
  Receipt Date: 20140124
  Transmission Date: 20141002
  Serious: Yes (Death)
  Sender: FDA-Public Use
  Company Number: 2014AP000521

PATIENT
  Age: 62 Year
  Sex: Female

DRUGS (8)
  1. AMLODIPINE BESYLATE [Suspect]
     Route: 048
  2. DILTIAZEM [Suspect]
     Route: 048
  3. CLONAZEPAM [Suspect]
     Route: 048
  4. VENLAFAXINE [Suspect]
     Route: 048
  5. NORTRIPTYLINE [Suspect]
     Route: 048
  6. AMPHETAMINE SALTS [Suspect]
     Route: 048
  7. TRIAMTERENE [Suspect]
     Route: 048
  8. ETHANOL [Suspect]
     Route: 048

REACTIONS (1)
  - Completed suicide [None]
